FAERS Safety Report 5736628-6 (Version None)
Quarter: 2008Q2

REPORT INFORMATION
  Report Type: 
  Country: None (occurrence: None)
  Receive Date: 20080513
  Receipt Date: 20080501
  Transmission Date: 20081010
  Serious: Yes (Hospitalization)
  Sender: FDA-Public Use
  Company Number: US-PFIZER INC-2008038947

PATIENT
  Sex: Male

DRUGS (1)
  1. LYRICA [Suspect]

REACTIONS (5)
  - APHASIA [None]
  - CONFUSIONAL STATE [None]
  - HEPATIC CIRRHOSIS [None]
  - MEMORY IMPAIRMENT [None]
  - SOMNAMBULISM [None]
